FAERS Safety Report 7883261-6 (Version None)
Quarter: 2011Q4

REPORT INFORMATION
  Report Type: 
  Country: None (occurrence: None)
  Receive Date: 20111031
  Receipt Date: 20111019
  Transmission Date: 20120403
  Serious: Yes (Hospitalization)
  Sender: FDA-Public Use
  Company Number: CIP11001846

PATIENT
  Age: 66 Year
  Sex: Male

DRUGS (17)
  1. FUROSEMIDE [Concomitant]
  2. RELAFEN [Concomitant]
  3. FOSAMAX [Suspect]
     Dates: start: 20040601, end: 20040701
  4. TENORETIC 100 [Concomitant]
  5. NORVASC [Concomitant]
  6. PLENDIL [Concomitant]
  7. IMURAN	/00001501/ (AZATHIOPRINE) [Concomitant]
  8. ZETIA [Concomitant]
  9. VARDENAFIL (VARDENAFIL) [Concomitant]
  10. GEMFIBROZIL [Concomitant]
  11. PREDNISONE TAB [Concomitant]
  12. TICLID [Concomitant]
  13. ACTONEL [Suspect]
     Dosage: , ORAL
     Route: 048
     Dates: end: 20091201
  14. SALSALATE (SALSALATE) [Concomitant]
  15. NIACIN [Concomitant]
  16. ZOCOR [Concomitant]
  17. ACTONEL [Suspect]
     Indication: OSTEOPENIA
     Dosage: 35MG ONCE WEEKLY, ORAL
     Route: 048
     Dates: start: 20050510, end: 20050601

REACTIONS (20)
  - OSTEONECROSIS OF JAW [None]
  - WHITE BLOOD CELL COUNT INCREASED [None]
  - GINGIVAL SWELLING [None]
  - PAIN [None]
  - EATING DISORDER [None]
  - CELLULITIS [None]
  - ALPHA HAEMOLYTIC STREPTOCOCCAL INFECTION [None]
  - PAIN IN JAW [None]
  - EXCESSIVE GRANULATION TISSUE [None]
  - PROCEDURAL PAIN [None]
  - ABDOMINAL DISCOMFORT [None]
  - SWELLING [None]
  - DEBRIDEMENT [None]
  - OSTEOMYELITIS [None]
  - SWELLING FACE [None]
  - DENTAL CARIES [None]
  - WOUND DEHISCENCE [None]
  - PURULENT DISCHARGE [None]
  - TENDERNESS [None]
  - TOOTHACHE [None]
